FAERS Safety Report 11710335 (Version 2)
Quarter: 2015Q4

REPORT INFORMATION
  Report Type: Spontaneous
  Country: US (occurrence: US)
  Receive Date: 20151104
  Receipt Date: 20151110
  Transmission Date: 20160304
  Serious: No
  Sender: FDA-Public Use
  Company Number: US-ELI_LILLY_AND_COMPANY-US201106001818

PATIENT
  Age: 70 Year
  Sex: Female

DRUGS (4)
  1. FORTEO [Suspect]
     Active Substance: TERIPARATIDE
     Indication: OSTEOPOROSIS
     Dosage: 20 UG, QD
     Route: 065
     Dates: start: 20110524
  2. FORTEO [Suspect]
     Active Substance: TERIPARATIDE
     Dosage: 20 UG, QD
     Route: 065
     Dates: end: 20120103
  3. FORTEO [Suspect]
     Active Substance: TERIPARATIDE
     Dosage: 20 UG, QD
     Route: 065
  4. FENTANYL. [Concomitant]
     Active Substance: FENTANYL
     Indication: SPINAL COLUMN INJURY

REACTIONS (17)
  - Back pain [Unknown]
  - Night sweats [Unknown]
  - Musculoskeletal pain [Unknown]
  - Pain [Unknown]
  - Middle insomnia [Unknown]
  - Feeling hot [Unknown]
  - Pain [Not Recovered/Not Resolved]
  - Decreased activity [Unknown]
  - Hot flush [Not Recovered/Not Resolved]
  - Somnolence [Unknown]
  - Muscle strain [Unknown]
  - Pain in extremity [Unknown]
  - Spinal cord injury [Unknown]
  - Neck pain [Unknown]
  - Muscle spasms [Unknown]
  - Malaise [Unknown]
  - Injection site erythema [Not Recovered/Not Resolved]

NARRATIVE: CASE EVENT DATE: 201107
